FAERS Safety Report 5012769-6 (Version None)
Quarter: 2006Q2

REPORT INFORMATION
  Report Type: 
  Country: None (occurrence: None)
  Receive Date: 20060530
  Receipt Date: 20060213
  Transmission Date: 20061013
  Serious: No
  Sender: FDA-Public Use
  Company Number: US-BRISTOL-MYERS SQUIBB COMPANY-13281530

PATIENT
  Age: 6 Decade
  Sex: Male

DRUGS (6)
  1. ERBITUX [Suspect]
     Indication: COLORECTAL CANCER
     Route: 041
  2. BENADRYL [Concomitant]
     Indication: PREMEDICATION
     Route: 048
  3. TYLENOL (GELTAB) [Concomitant]
     Indication: PREMEDICATION
     Route: 048
  4. IRINOTECAN HCL [Concomitant]
     Dosage: ADMINISTERED ON THE SAME DAY AS THE CETUXIMAB.
     Route: 042
  5. COUMADIN [Concomitant]
  6. LOVENOX [Concomitant]

REACTIONS (2)
  - ARTERIAL INSUFFICIENCY [None]
  - PARAESTHESIA [None]
